FAERS Safety Report 21382587 (Version 3)
Quarter: 2022Q4

REPORT INFORMATION
  Report Type: Other
  Country: CA (occurrence: CA)
  Receive Date: 20220927
  Receipt Date: 20221018
  Transmission Date: 20230113
  Serious: Yes (Other)
  Sender: FDA-Public Use
  Company Number: CA-002147023-NVSC2022CA212687

PATIENT
  Age: 33 Year
  Sex: Female

DRUGS (6)
  1. XOLAIR [Suspect]
     Active Substance: OMALIZUMAB
     Indication: Chronic spontaneous urticaria
     Dosage: 300 MG, EVERY 4 WEEKS?MOST RECENT DOSE RECEIVED ON 16/SEP/2022.
     Route: 058
     Dates: start: 20220916, end: 20220916
  2. CETIRIZINE [Concomitant]
     Active Substance: CETIRIZINE HYDROCHLORIDE
     Indication: Product used for unknown indication
     Dosage: UNK, QD
     Dates: start: 202006
  3. NASONEX [Concomitant]
     Active Substance: MOMETASONE FUROATE
     Indication: Product used for unknown indication
     Dosage: UNK
  4. IMITREX [Concomitant]
     Active Substance: SUMATRIPTAN SUCCINATE
     Indication: Product used for unknown indication
     Dosage: UNK
  5. SYMBICORT [Concomitant]
     Active Substance: BUDESONIDE\FORMOTEROL FUMARATE DIHYDRATE
     Indication: Product used for unknown indication
     Dosage: UNK
  6. SODIUM CHLORIDE [Concomitant]
     Active Substance: SODIUM CHLORIDE
     Indication: Product used for unknown indication

REACTIONS (26)
  - Anaphylactic shock [Unknown]
  - Palpitations [Unknown]
  - Dyspnoea [Unknown]
  - Nausea [Unknown]
  - Rash [Unknown]
  - Pruritus [Unknown]
  - Hypoaesthesia [Unknown]
  - Blood pressure increased [Unknown]
  - Tremor [Unknown]
  - Erythema [Unknown]
  - Heart rate increased [Unknown]
  - Respiratory disorder [Recovering/Resolving]
  - Diarrhoea [Recovering/Resolving]
  - Abdominal pain [Recovering/Resolving]
  - Pharyngeal swelling [Recovering/Resolving]
  - Skin plaque [Recovering/Resolving]
  - Choking [Recovering/Resolving]
  - Chest discomfort [Recovering/Resolving]
  - Urticaria [Recovering/Resolving]
  - Flushing [Recovering/Resolving]
  - Asthma [Recovering/Resolving]
  - Respiratory distress [Recovering/Resolving]
  - Wheezing [Recovering/Resolving]
  - Stridor [Recovering/Resolving]
  - Bone pain [Unknown]
  - Papule [Recovered/Resolved]

NARRATIVE: CASE EVENT DATE: 20220916
